FAERS Safety Report 19281482 (Version 3)
Quarter: 2021Q2

REPORT INFORMATION
  Report Type: Spontaneous
  Country: CL (occurrence: CL)
  Receive Date: 20210520
  Receipt Date: 20210607
  Transmission Date: 20210717
  Serious: No
  Sender: FDA-Public Use
  Company Number: CL-PFIZER INC-2021529062

PATIENT
  Age: 28 Year
  Sex: Female

DRUGS (1)
  1. SAYANA PRESS [Suspect]
     Active Substance: MEDROXYPROGESTERONE\MEDROXYPROGESTERONE ACETATE
     Dosage: UNK
     Route: 058

REACTIONS (8)
  - Device difficult to use [Unknown]
  - Wrong technique in product usage process [Unknown]
  - Accidental exposure to product [Unknown]
  - Incorrect dose administered [Unknown]
  - Injection site bruising [Unknown]
  - Device breakage [Unknown]
  - Needle issue [Unknown]
  - Drug dose omission by device [Unknown]
